FAERS Safety Report 8798923 (Version 1)
Quarter: 2012Q4

REPORT INFORMATION
  Report Type: 
  Country: US (occurrence: US)
  Receive Date: 20120920
  Receipt Date: 20120920
  Transmission Date: 20130627
  Serious: Yes (Hospitalization)
  Sender: FDA-Public Use
  Company Number: CHPA2012US019626

PATIENT
  Age: 80 Year
  Sex: Male

DRUGS (1)
  1. DEXTROMETHORPHAN HYDROBROMIDE [Suspect]
     Indication: BRONCHITIS CHRONIC
     Dosage: RECOMMENDED DOSE
     Route: 048

REACTIONS (2)
  - Cerebrovascular accident [Recovered/Resolved]
  - Off label use [Unknown]
